FAERS Safety Report 17161696 (Version 1)
Quarter: 2019Q4

REPORT INFORMATION
  Report Type: Spontaneous
  Country: CN (occurrence: CN)
  Receive Date: 20191217
  Receipt Date: 20191217
  Transmission Date: 20200122
  Serious: Yes (Other)
  Sender: FDA-Public Use
  Company Number: CN-SA-2019SA347386

PATIENT
  Age: 70 Year
  Sex: Female
  Weight: 50 kg

DRUGS (5)
  1. ELOXATIN [Suspect]
     Active Substance: OXALIPLATIN
     Indication: CHEMOTHERAPY
     Dosage: 150 MG, QD
     Route: 041
     Dates: start: 20191016, end: 20191016
  2. ELOXATIN [Suspect]
     Active Substance: OXALIPLATIN
     Dosage: 150 MG, QD
     Route: 041
     Dates: start: 20191118
  3. CAPECITABINE. [Suspect]
     Active Substance: CAPECITABINE
     Indication: CHEMOTHERAPY
     Dosage: 1.5 G, BID
     Route: 048
     Dates: start: 20191016, end: 20191030
  4. CAPECITABINE. [Suspect]
     Active Substance: CAPECITABINE
     Dosage: 1.5 G, BID
     Route: 048
     Dates: start: 20191118
  5. GLUCOSE [Concomitant]
     Active Substance: DEXTROSE
     Indication: VEHICLE SOLUTION USE
     Dosage: 500 ML, QD
     Route: 041
     Dates: start: 20191016, end: 20191016

REACTIONS (3)
  - Red blood cell count decreased [Recovering/Resolving]
  - Haemoglobin decreased [Recovering/Resolving]
  - Platelet count decreased [Recovering/Resolving]

NARRATIVE: CASE EVENT DATE: 20191110
